FAERS Safety Report 4411737-2 (Version None)
Quarter: 2004Q3

REPORT INFORMATION
  Report Type: 
  Country: None (occurrence: None)
  Receive Date: 20040728
  Receipt Date: 20040716
  Transmission Date: 20050211
  Serious: Yes (Hospitalization)
  Sender: FDA-Public Use
  Company Number: RENA-11097

PATIENT
  Age: 67 Year
  Sex: Female
  Weight: 40 kg

DRUGS (12)
  1. RENAGEL [Suspect]
     Indication: HYPERPHOSPHATAEMIA
     Dosage: 1.25 G TID PO
     Route: 048
     Dates: start: 20031208, end: 20040617
  2. ALLOPURINOL [Concomitant]
  3. CILOSTAZOL [Concomitant]
  4. LANSOPRAZOLE [Concomitant]
  5. TEPRENONE [Concomitant]
  6. PIMOBENDAN [Concomitant]
  7. CARVEDILOL [Concomitant]
  8. DEXCHLORPHENIRAMINE MALEATE [Concomitant]
  9. AMEZINIUM METILSULFATE [Concomitant]
  10. CALCIUM POLYSTYRENE SULFONATE [Concomitant]
  11. RHUBARB DRY EXTRACT [Concomitant]
  12. SENNA [Concomitant]

REACTIONS (5)
  - BLOOD POTASSIUM INCREASED [None]
  - DIALYSIS [None]
  - ILEUS [None]
  - INTESTINAL ISCHAEMIA [None]
  - POSTOPERATIVE ADHESION [None]
